FAERS Safety Report 21620894 (Version 1)
Quarter: 2022Q4

REPORT INFORMATION
  Report Type: Spontaneous
  Country: US (occurrence: None)
  Receive Date: 20221118
  Receipt Date: 20221118
  Transmission Date: 20230113
  Serious: No
  Sender: FDA-Public Use
  Company Number: None

PATIENT
  Sex: Male

DRUGS (1)
  1. OTEZLA [Suspect]
     Active Substance: APREMILAST
     Indication: Psoriasis
     Route: 048
     Dates: start: 20221021

REACTIONS (4)
  - Abdominal discomfort [None]
  - Diarrhoea [None]
  - Therapy non-responder [None]
  - Therapeutic product effect delayed [None]
